FAERS Safety Report 5732104-5 (Version None)
Quarter: 2008Q2

REPORT INFORMATION
  Report Type: 
  Country: None (occurrence: None)
  Receive Date: 20080506
  Receipt Date: 20080422
  Transmission Date: 20081010
  Serious: Yes (Life-Threatening, Other)
  Sender: FDA-Public Use
  Company Number: 220003M08GBR

PATIENT
  Age: 30 Year
  Sex: Male

DRUGS (1)
  1. SOMATROPIN (SOMATROPIN) [Suspect]
     Dosage: SUBCUTANEOUS
     Route: 058
     Dates: start: 19860101, end: 19950101

REACTIONS (2)
  - APPARENT LIFE THREATENING EVENT [None]
  - TESTIS CANCER [None]
